FAERS Safety Report 12245932 (Version 2)
Quarter: 2016Q4

REPORT INFORMATION
  Report Type: Spontaneous
  Country: US (occurrence: US)
  Receive Date: 20160407
  Receipt Date: 20161102
  Transmission Date: 20170207
  Serious: No
  Sender: FDA-Public Use
  Company Number: US-ACTELION PHARMACEUTICALS US, INC.-A-US2016-133638

PATIENT
  Age: 38 Year
  Sex: Female
  Weight: 120.18 kg

DRUGS (3)
  1. ADCIRCA [Concomitant]
     Active Substance: TADALAFIL
  2. LETAIRIS [Concomitant]
     Active Substance: AMBRISENTAN
  3. UPTRAVI [Suspect]
     Active Substance: SELEXIPAG
     Indication: PULMONARY ARTERIAL HYPERTENSION
     Dosage: 200 MCG, BID
     Route: 048
     Dates: start: 20160321

REACTIONS (7)
  - Myalgia [Unknown]
  - Photophobia [Unknown]
  - Abdominal discomfort [Unknown]
  - Nausea [Unknown]
  - Headache [Unknown]
  - Pain in jaw [Unknown]
  - Insomnia [Unknown]
